FAERS Safety Report 8138820-2 (Version None)
Quarter: 2012Q1

REPORT INFORMATION
  Report Type: 
  Country: None (occurrence: None)
  Receive Date: 20120215
  Receipt Date: 20120207
  Transmission Date: 20120608
  Serious: Yes (Other)
  Sender: FDA-Public Use
  Company Number: US-ABBOTT-11P-163-0863027-00

PATIENT
  Sex: Female
  Weight: 68.1 kg

DRUGS (12)
  1. METHOTREXATE [Suspect]
     Indication: PSORIATIC ARTHROPATHY
     Dosage: 6 PILLS WEEKLY
  2. SIMVASTATIN [Concomitant]
     Indication: PLATELET COUNT ABNORMAL
  3. SIMVASTATIN [Concomitant]
     Indication: PERIPHERAL ARTERIAL OCCLUSIVE DISEASE
  4. PLAVIX [Suspect]
     Indication: PERIPHERAL ARTERIAL OCCLUSIVE DISEASE
     Dates: start: 20110101
  5. ZYRTEC [Concomitant]
     Indication: RHINORRHOEA
  6. ALPRAZOLAM [Concomitant]
     Indication: INSOMNIA
     Dosage: 0.25MG NIGHTLY
  7. HUMIRA [Suspect]
     Indication: PSORIATIC ARTHROPATHY
     Dates: start: 20100301
  8. ASPIRIN [Suspect]
     Indication: PRODUCT USED FOR UNKNOWN INDICATION
     Dosage: AT BEDTIME
  9. FOLIC ACID [Concomitant]
     Indication: VITAMIN SUPPLEMENTATION
  10. HUMIRA [Suspect]
     Indication: PSORIASIS
  11. VITAMIN D [Concomitant]
     Indication: VITAMIN SUPPLEMENTATION
  12. EVISTA [Concomitant]
     Indication: HORMONE REPLACEMENT THERAPY

REACTIONS (13)
  - INJECTION SITE PAIN [None]
  - PERIPHERAL VASCULAR DISORDER [None]
  - PRURITUS [None]
  - PAIN IN EXTREMITY [None]
  - OEDEMA PERIPHERAL [None]
  - DEPRESSION [None]
  - FOOT FRACTURE [None]
  - JOINT RANGE OF MOTION DECREASED [None]
  - INJECTION SITE HAEMORRHAGE [None]
  - PERIPHERAL ARTERIAL OCCLUSIVE DISEASE [None]
  - FATIGUE [None]
  - INJECTION SITE HAEMATOMA [None]
  - ROAD TRAFFIC ACCIDENT [None]
